FAERS Safety Report 9664610 (Version 1)
Quarter: 2013Q4

REPORT INFORMATION
  Report Type: Spontaneous
  Country: US (occurrence: None)
  Receive Date: 20131031
  Receipt Date: 20131031
  Transmission Date: 20140711
  Serious: Yes (Other)
  Sender: FDA-Public Use
  Company Number: None

PATIENT
  Age: 49 Year
  Sex: Female

DRUGS (2)
  1. MAXALT [Suspect]
     Indication: HEADACHE
     Dates: start: 20130909
  2. MAXALT [Suspect]
     Indication: EPILEPSY
     Dates: start: 20130909

REACTIONS (2)
  - Headache [None]
  - Unevaluable event [None]
